FAERS Safety Report 7081222-0 (Version None)
Quarter: 2010Q4

REPORT INFORMATION
  Report Type: 
  Country: None (occurrence: None)
  Receive Date: 20101102
  Receipt Date: 20101102
  Transmission Date: 20110411
  Serious: Yes (Life-Threatening, Hospitalization, Other)
  Sender: FDA-Public Use
  Company Number: None

PATIENT
  Sex: Female
  Weight: 88.4514 kg

DRUGS (1)
  1. DYSPORT [Suspect]
     Indication: TORTICOLLIS
     Dosage: ONCE
     Dates: start: 20100820, end: 20100820

REACTIONS (14)
  - ABNORMAL BEHAVIOUR [None]
  - ASTHENIA [None]
  - BURNING SENSATION [None]
  - DRUG INEFFECTIVE [None]
  - DRUG INTOLERANCE [None]
  - DYSPHAGIA [None]
  - DYSPNOEA [None]
  - INSOMNIA [None]
  - MUSCLE SPASMS [None]
  - MUSCULAR WEAKNESS [None]
  - SENSATION OF FOREIGN BODY [None]
  - TEMPERATURE INTOLERANCE [None]
  - VIITH NERVE PARALYSIS [None]
  - WEIGHT DECREASED [None]
